FAERS Safety Report 7982748-5 (Version None)
Quarter: 2011Q4

REPORT INFORMATION
  Report Type: 
  Country: None (occurrence: None)
  Receive Date: 20111215
  Receipt Date: 20111205
  Transmission Date: 20120403
  Serious: Yes (Hospitalization, Other)
  Sender: FDA-Public Use
  Company Number: US-AMGEN-USASP2011063343

PATIENT
  Age: 78 Year
  Sex: Female

DRUGS (1)
  1. ENBREL [Suspect]
     Indication: RHEUMATOID ARTHRITIS
     Dosage: 50 MG, UNK
     Dates: start: 20010212

REACTIONS (7)
  - UPPER RESPIRATORY TRACT IRRITATION [None]
  - NASAL CONGESTION [None]
  - HERNIA [None]
  - DYSPHONIA [None]
  - FATIGUE [None]
  - COUGH [None]
  - OROPHARYNGEAL PAIN [None]
